FAERS Safety Report 24103565 (Version 1)
Quarter: 2024Q3

REPORT INFORMATION
  Report Type: Report from Study
  Country: US (occurrence: None)
  Receive Date: 20240717
  Receipt Date: 20240717
  Transmission Date: 20241016
  Serious: Yes (Hospitalization, Other)
  Sender: ASTRAZENECA
  Company Number: 2019SF05813

PATIENT
  Sex: Male

DRUGS (2)
  1. SYMBICORT [Suspect]
     Active Substance: BUDESONIDE\FORMOTEROL FUMARATE DIHYDRATE
     Indication: Chronic obstructive pulmonary disease
     Dosage: 160/4.5MCG, TWO TIMES A DAY
     Route: 055
  2. DALIRESP [Suspect]
     Active Substance: ROFLUMILAST
     Indication: Chronic obstructive pulmonary disease
     Route: 048
     Dates: start: 2018

REACTIONS (13)
  - Peripheral arterial occlusive disease [Unknown]
  - Deep vein thrombosis [Unknown]
  - Fibula fracture [Unknown]
  - Tibia fracture [Unknown]
  - Thrombosis [Unknown]
  - Inability to afford medication [Unknown]
  - Cough [Unknown]
  - Oxygen saturation decreased [Unknown]
  - Hypokalaemia [Unknown]
  - Peripheral swelling [Unknown]
  - Hypoproteinaemia [Unknown]
  - Nutritional condition abnormal [Unknown]
  - Feeling abnormal [Unknown]
